FAERS Safety Report 9001945 (Version 2)
Quarter: 2013Q2

REPORT INFORMATION
  Report Type: Spontaneous
  Country: FR (occurrence: FR)
  Receive Date: 20130108
  Receipt Date: 20130626
  Transmission Date: 20140414
  Serious: Yes (Hospitalization, Other)
  Sender: FDA-Public Use
  Company Number: FR-BRISTOL-MYERS SQUIBB COMPANY-17262452

PATIENT
  Age: 56 Year
  Sex: Male

DRUGS (2)
  1. COUMADINE [Suspect]
     Dosage: SCORED TABLET
     Route: 048
     Dates: start: 2008
  2. DAFALGAN [Suspect]
     Route: 048

REACTIONS (4)
  - Melaena [Unknown]
  - International normalised ratio fluctuation [Unknown]
  - Renal failure acute [Unknown]
  - Overdose [Unknown]
